FAERS Safety Report 13450616 (Version 1)
Quarter: 2017Q2

REPORT INFORMATION
  Report Type: Spontaneous
  Country: US (occurrence: US)
  Receive Date: 20170418
  Receipt Date: 20170418
  Transmission Date: 20170830
  Serious: No
  Sender: FDA-Public Use
  Company Number: US-TEVA-694161USA

PATIENT
  Age: 60 Year
  Sex: Female
  Weight: 49.94 kg

DRUGS (1)
  1. BUPROPION HYDROCHLORIDE SR [Suspect]
     Active Substance: BUPROPION HYDROCHLORIDE
     Indication: SMOKING CESSATION THERAPY
     Dates: start: 20160815, end: 20160901

REACTIONS (2)
  - Nausea [Unknown]
  - Dizziness [Unknown]
